FAERS Safety Report 20062459 (Version 2)
Quarter: 2021Q4

REPORT INFORMATION
  Report Type: Report from Study
  Country: BE (occurrence: BE)
  Receive Date: 20211112
  Receipt Date: 20211201
  Transmission Date: 20220303
  Serious: Yes (Hospitalization, Other)
  Sender: FDA-Public Use
  Company Number: BE-SA-SAC20210802000069

PATIENT
  Age: 75 Year
  Sex: Male

DRUGS (2)
  1. INSULIN GLARGINE [Suspect]
     Active Substance: INSULIN GLARGINE
     Indication: Type 2 diabetes mellitus
     Dosage: 14 INTERNATIONAL UNIT, QD
     Route: 065
     Dates: start: 20210625
  2. INSULIN GLARGINE [Suspect]
     Active Substance: INSULIN GLARGINE
     Dosage: 10 INTERNATIONAL UNIT, QD
     Route: 065
     Dates: start: 20210625

REACTIONS (6)
  - White blood cell count increased [Not Recovered/Not Resolved]
  - Malnutrition [Not Recovered/Not Resolved]
  - Pancreatic sarcoma [Not Recovered/Not Resolved]
  - Hypotension [Unknown]
  - Blood glucose decreased [Recovering/Resolving]
  - Pleural effusion [Unknown]

NARRATIVE: CASE EVENT DATE: 20210726
